FAERS Safety Report 6465503-7 (Version None)
Quarter: 2009Q4

REPORT INFORMATION
  Report Type: 
  Country: None (occurrence: None)
  Receive Date: 20091201
  Receipt Date: 20081119
  Transmission Date: 20100525
  Serious: No
  Sender: FDA-Public Use
  Company Number: US-AMGEN-KDL312697

PATIENT
  Sex: Female
  Weight: 115.8 kg

DRUGS (9)
  1. ENBREL [Suspect]
     Indication: RHEUMATOID ARTHRITIS
     Route: 058
     Dates: start: 20080903
  2. ARAVA [Concomitant]
     Route: 048
  3. PREDNISONE TAB [Concomitant]
     Route: 048
  4. CELEBREX [Concomitant]
     Route: 048
  5. ZESTRIL [Concomitant]
     Route: 048
  6. ADVAIR DISKUS 100/50 [Concomitant]
     Route: 048
  7. SINGULAIR [Concomitant]
     Route: 048
  8. CLARITIN [Concomitant]
     Route: 048
  9. TUMS [Concomitant]
     Route: 048

REACTIONS (6)
  - INJECTION SITE ERYTHEMA [None]
  - INJECTION SITE IRRITATION [None]
  - INJECTION SITE PRURITUS [None]
  - NAUSEA [None]
  - SINUS CONGESTION [None]
  - SYNOVITIS [None]
